FAERS Safety Report 5519804-7 (Version None)
Quarter: 2007Q4

REPORT INFORMATION
  Report Type: 
  Country: None (occurrence: None)
  Receive Date: 20071116
  Receipt Date: 20070824
  Transmission Date: 20080405
  Serious: No
  Sender: FDA-Public Use
  Company Number: A0676168A

PATIENT
  Age: 67 Year
  Sex: Female

DRUGS (6)
  1. COREG CR [Suspect]
     Indication: HYPERTENSION
     Dosage: 40MG PER DAY
     Route: 048
     Dates: start: 20070801, end: 20070801
  2. ACE INHIBITORS [Concomitant]
  3. PLAVIX [Concomitant]
  4. STATINS [Concomitant]
  5. DIABETES MEDICATION [Concomitant]
  6. ASPIRIN [Concomitant]

REACTIONS (2)
  - ADVERSE EVENT [None]
  - FACE OEDEMA [None]
